FAERS Safety Report 8778070 (Version 3)
Quarter: 2012Q4

REPORT INFORMATION
  Report Type: 
  Country: US (occurrence: US)
  Receive Date: 20120911
  Receipt Date: 20121017
  Transmission Date: 20130627
  Serious: No
  Sender: FDA-Public Use
  Company Number: US-PFIZER INC-2012220103

PATIENT
  Age: 2 Year
  Sex: Male

DRUGS (2)
  1. EPIPEN JR [Suspect]
     Indication: MILK ALLERGY
     Dosage: UNK
  2. EPIPEN JR [Suspect]
     Indication: ANAPHYLACTIC REACTION

REACTIONS (1)
  - Injection site pain [Unknown]
